FAERS Safety Report 7803500-7 (Version None)
Quarter: 2011Q4

REPORT INFORMATION
  Report Type: 
  Country: None (occurrence: None)
  Receive Date: 20111007
  Receipt Date: 20110928
  Transmission Date: 20120403
  Serious: Yes (Other)
  Sender: FDA-Public Use
  Company Number: US-ASTRAZENECA-2011SE58909

PATIENT
  Sex: Male

DRUGS (12)
  1. OMEPRAZOLE [Suspect]
     Route: 048
  2. SALSALATE [Concomitant]
  3. LISINOPRIL [Suspect]
     Route: 048
  4. SINGULAIR [Concomitant]
  5. VITAMIN E [Concomitant]
  6. FINASTERIDE [Concomitant]
  7. TERAZOSIN HCL [Concomitant]
  8. FLAX SEED [Concomitant]
  9. AMLODIPINE BESYLATE [Concomitant]
  10. SIMVASTATIN [Concomitant]
  11. VITAMIN D [Concomitant]
  12. FISH OIL [Concomitant]

REACTIONS (2)
  - DYSURIA [None]
  - CATARACT [None]
